FAERS Safety Report 7021294-2 (Version None)
Quarter: 2010Q3

REPORT INFORMATION
  Report Type: 
  Country: None (occurrence: None)
  Receive Date: 20100929
  Receipt Date: 20100830
  Transmission Date: 20110219
  Serious: No
  Sender: FDA-Public Use
  Company Number: US-PFIZER INC-2010109601

PATIENT
  Sex: Female

DRUGS (3)
  1. GEODON [Suspect]
     Indication: MENTAL DISORDER
     Dosage: UNK
     Dates: start: 20100802
  2. DEPAKOTE [Concomitant]
     Dosage: UNK
  3. DIVALPROEX SODIUM [Concomitant]
     Dosage: UNK

REACTIONS (2)
  - JOINT SWELLING [None]
  - OEDEMA [None]
